FAERS Safety Report 7741193-8 (Version None)
Quarter: 2011Q3

REPORT INFORMATION
  Report Type: 
  Country: None (occurrence: None)
  Receive Date: 20110909
  Receipt Date: 20110906
  Transmission Date: 20111222
  Serious: Yes (Death, Life-Threatening, Hospitalization, Other)
  Sender: FDA-Public Use
  Company Number: AU-CEPHALON-2011003384

PATIENT
  Sex: Male
  Weight: 72 kg

DRUGS (8)
  1. ALLOPURINOL [Concomitant]
     Dates: start: 19800101, end: 20110612
  2. BENDAMUSTINE HCL [Suspect]
     Indication: NON-HODGKIN'S LYMPHOMA
     Route: 042
     Dates: start: 20101206, end: 20110601
  3. RITUXIMAB [Suspect]
     Indication: NON-HODGKIN'S LYMPHOMA
     Route: 042
     Dates: start: 20101206, end: 20110601
  4. ACETAMINOPHEN [Concomitant]
     Dates: start: 20100101
  5. IRBESARTAN + HYDROCHLOROTHIAZIDE [Concomitant]
     Dates: start: 19900101, end: 20110612
  6. MAXOLON [Concomitant]
     Dates: start: 20100101, end: 20110612
  7. PIPERACILLIN AND TAZOBACTAM [Concomitant]
     Dates: start: 20110608, end: 20110618
  8. VALTREX [Concomitant]
     Dates: start: 20110607, end: 20110619

REACTIONS (2)
  - PNEUMOCYSTIS JIROVECI PNEUMONIA [None]
  - HYPOXIA [None]
